FAERS Safety Report 18561614 (Version 10)
Quarter: 2021Q3

REPORT INFORMATION
  Report Type: Report from Study
  Country: US (occurrence: US)
  Receive Date: 20201201
  Receipt Date: 20210923
  Transmission Date: 20211014
  Serious: Yes (Other)
  Sender: FDA-Public Use
  Company Number: NVSC2020US305388

PATIENT
  Sex: Female

DRUGS (1)
  1. KESIMPTA [Suspect]
     Active Substance: OFATUMUMAB
     Indication: PRODUCT USED FOR UNKNOWN INDICATION
     Dosage: UNK
     Route: 065

REACTIONS (13)
  - Mood swings [Recovered/Resolved]
  - Dry mouth [Recovered/Resolved]
  - Headache [Recovered/Resolved]
  - Multiple sclerosis [Unknown]
  - Mucosal dryness [Recovered/Resolved]
  - Oral mucosal exfoliation [Recovered/Resolved]
  - Alopecia [Not Recovered/Not Resolved]
  - Constipation [Recovered/Resolved]
  - Irritability [Recovered/Resolved]
  - Photophobia [Recovered/Resolved]
  - Eye discharge [Not Recovered/Not Resolved]
  - Eye pain [Recovered/Resolved]
  - Dry eye [Recovered/Resolved]
